FAERS Safety Report 5507404-4 (Version None)
Quarter: 2007Q4

REPORT INFORMATION
  Report Type: 
  Country: None (occurrence: None)
  Receive Date: 20071106
  Receipt Date: 20071026
  Transmission Date: 20080405
  Serious: Yes (Hospitalization, Other)
  Sender: FDA-Public Use
  Company Number: US-AVENTIS-200717079US

PATIENT
  Age: 72 Year
  Sex: Female

DRUGS (22)
  1. LANTUS [Suspect]
     Route: 051
     Dates: start: 20070901, end: 20070101
  2. LANTUS [Suspect]
     Route: 051
     Dates: start: 20070101, end: 20070101
  3. LANTUS [Suspect]
     Route: 051
     Dates: start: 20070101, end: 20071001
  4. LANTUS [Suspect]
     Route: 051
     Dates: start: 20071001, end: 20071001
  5. LANTUS [Suspect]
     Route: 051
     Dates: start: 20071001, end: 20071001
  6. LANTUS [Suspect]
     Dosage: DOSE: 13 IN AM AND 20 IN PM
     Route: 051
     Dates: start: 20071001
  7. OPTICLIK GREY [Suspect]
     Dates: start: 20070901
  8. LANTUS [Suspect]
     Dosage: DOSE: 20 AT NIGHT AND 14 IN THE MORNING
     Dates: start: 20070101
  9. GLIPIZIDE [Concomitant]
     Dosage: DOSE: UNK
  10. METOPROLOL [Concomitant]
     Dosage: DOSE: UNK
  11. DIOVAN [Concomitant]
  12. ASPIRIN [Concomitant]
     Dosage: DOSE: UNK
  13. SYNTHROID [Concomitant]
     Dosage: DOSE: UNK
  14. RANITIDINE [Concomitant]
     Dosage: DOSE: UNK
  15. MAGNESIUM OXIDE [Concomitant]
     Dosage: DOSE: UNK
  16. VITAMIN CAP [Concomitant]
     Dosage: DOSE: UNK
  17. TRAVATAN [Concomitant]
     Dosage: DOSE: UNK
     Route: 047
  18. VITAMIN B-12 [Concomitant]
     Dosage: DOSE: UNK
  19. IRON [Concomitant]
     Dosage: DOSE: UNK
  20. VIT D [Concomitant]
     Dosage: DOSE: UNK
  21. CHROMIUM PICOLINATE [Concomitant]
     Dosage: DOSE: UNK
  22. ASCORBIC ACID [Concomitant]
     Dosage: DOSE: UNK

REACTIONS (14)
  - ABDOMINAL PAIN [None]
  - BACK PAIN [None]
  - BLOOD GLUCOSE INCREASED [None]
  - CHEST PAIN [None]
  - CONFUSIONAL STATE [None]
  - DRUG ADMINISTRATION ERROR [None]
  - DRUG INEFFECTIVE [None]
  - FEELING ABNORMAL [None]
  - INJECTION SITE BRUISING [None]
  - MEMORY IMPAIRMENT [None]
  - NIGHTMARE [None]
  - OVERDOSE [None]
  - PALPITATIONS [None]
  - PANIC ATTACK [None]
